FAERS Safety Report 18487985 (Version 2)
Quarter: 2020Q4

REPORT INFORMATION
  Report Type: Report from Study
  Country: BR (occurrence: BR)
  Receive Date: 20201111
  Receipt Date: 20201222
  Transmission Date: 20210114
  Serious: Yes (Hospitalization, Other)
  Sender: FDA-Public Use
  Company Number: BR-JNJFOC-20201109106

PATIENT
  Age: 49 Year
  Sex: Male
  Weight: 82 kg

DRUGS (9)
  1. INFLIXIMAB, RECOMBINANT [Suspect]
     Active Substance: INFLIXIMAB
     Route: 042
     Dates: start: 20200717, end: 202008
  2. REMICADE [Suspect]
     Active Substance: INFLIXIMAB
     Indication: CROHN^S DISEASE
     Route: 042
     Dates: start: 20190717, end: 20190810
  3. REMICADE [Suspect]
     Active Substance: INFLIXIMAB
     Route: 042
     Dates: start: 20200717, end: 202008
  4. ISONIAZID. [Suspect]
     Active Substance: ISONIAZID
     Indication: DISSEMINATED TUBERCULOSIS
     Route: 065
     Dates: start: 201911, end: 20200827
  5. MESALAZINE [Concomitant]
     Active Substance: MESALAMINE
     Route: 065
  6. INFLIXIMAB, RECOMBINANT [Suspect]
     Active Substance: INFLIXIMAB
     Indication: CROHN^S DISEASE
     Route: 042
     Dates: start: 20190717, end: 20190810
  7. RIFAMPICIN [Suspect]
     Active Substance: RIFAMPIN
     Indication: DISSEMINATED TUBERCULOSIS
     Route: 065
     Dates: start: 201911, end: 20200827
  8. MESALAZINE [Concomitant]
     Active Substance: MESALAMINE
     Route: 065
  9. ETHAMBUTOL [Suspect]
     Active Substance: ETHAMBUTOL HYDROCHLORIDE
     Indication: DISSEMINATED TUBERCULOSIS
     Route: 065
     Dates: start: 201911, end: 20200827

REACTIONS (15)
  - Alopecia [Unknown]
  - Peripheral swelling [Unknown]
  - Muscle atrophy [Unknown]
  - Asthenia [Unknown]
  - Inflammation [Unknown]
  - Headache [Unknown]
  - Eye pain [Unknown]
  - Pyrexia [Unknown]
  - Hepatotoxicity [Unknown]
  - Hair disorder [Not Recovered/Not Resolved]
  - Adrenal mass [Unknown]
  - Weight decreased [Not Recovered/Not Resolved]
  - Amnesia [Unknown]
  - Disseminated tuberculosis [Unknown]
  - Pain [Unknown]

NARRATIVE: CASE EVENT DATE: 20190731
